FAERS Safety Report 11904280 (Version 1)
Quarter: 2016Q1

REPORT INFORMATION
  Report Type: Spontaneous
  Country: US (occurrence: US)
  Receive Date: 20160108
  Receipt Date: 20160108
  Transmission Date: 20160526
  Serious: No
  Sender: FDA-Public Use
  Company Number: US-ROCHE-1577139

PATIENT
  Sex: Male

DRUGS (1)
  1. RITUXAN [Suspect]
     Active Substance: RITUXIMAB
     Indication: NON-HODGKIN^S LYMPHOMA
     Route: 065

REACTIONS (8)
  - Depression [Unknown]
  - Clostridium difficile infection [Unknown]
  - Insomnia [Unknown]
  - Staphylococcal infection [Unknown]
  - Chest pain [Unknown]
  - Nausea [Unknown]
  - Hypersensitivity [Unknown]
  - Weight decreased [Unknown]
